FAERS Safety Report 9434349 (Version 1)
Quarter: 2013Q3

REPORT INFORMATION
  Report Type: Spontaneous
  Country: US (occurrence: None)
  Receive Date: 20130731
  Receipt Date: 20130731
  Transmission Date: 20140515
  Serious: No
  Sender: FDA-Public Use
  Company Number: None

PATIENT
  Age: 62 Year
  Sex: Male
  Weight: 83.01 kg

DRUGS (1)
  1. EXJADE 250MG NOVARTIS [Suspect]
     Indication: IRON OVERLOAD
     Dosage: 750MG DAILY ORAL
     Route: 048
     Dates: start: 20130719, end: 20130730

REACTIONS (1)
  - Rash generalised [None]
